FAERS Safety Report 8615990-0 (Version None)
Quarter: 2012Q3

REPORT INFORMATION
  Report Type: 
  Country: None (occurrence: None)
  Receive Date: 20120823
  Receipt Date: 20120815
  Transmission Date: 20120928
  Serious: Yes (Hospitalization, Disabling, Other)
  Sender: FDA-Public Use
  Company Number: US-009507513-1202USA00845

PATIENT

DRUGS (6)
  1. FOSAMAX [Suspect]
     Dosage: 70 MG, UNK
     Route: 048
     Dates: start: 20010315
  2. FOSAMAX [Suspect]
     Indication: OSTEOPOROSIS
     Dosage: 10 MG, UNK
     Route: 048
     Dates: start: 20000215
  3. ALENDRONATE SODIUM [Suspect]
     Indication: OSTEOPOROSIS
     Dosage: 70 MG, UNK
     Route: 048
     Dates: start: 20080407, end: 20100104
  4. BONIVA [Suspect]
     Indication: BONE LOSS
     Dosage: 150 MG, UNK
     Route: 048
     Dates: start: 20100325, end: 20110207
  5. BONIVA [Suspect]
     Indication: OSTEOPOROSIS
  6. PREVACID [Concomitant]
     Dates: start: 19970101, end: 20020101

REACTIONS (65)
  - RADICULAR SYNDROME [None]
  - RESTLESS LEGS SYNDROME [None]
  - SINUSITIS [None]
  - HYPERHIDROSIS [None]
  - SEBORRHOEIC KERATOSIS [None]
  - ACTINIC KERATOSIS [None]
  - VULVOVAGINAL DISCOMFORT [None]
  - ANGINA PECTORIS [None]
  - STRESS FRACTURE [None]
  - FOOT FRACTURE [None]
  - SCOLIOSIS [None]
  - POOR QUALITY SLEEP [None]
  - URINARY INCONTINENCE [None]
  - STRESS URINARY INCONTINENCE [None]
  - CYSTITIS [None]
  - BLADDER DISORDER [None]
  - BONE DENSITY DECREASED [None]
  - FEMUR FRACTURE [None]
  - BLOOD CHOLESTEROL INCREASED [None]
  - BUNION [None]
  - LIGAMENT SPRAIN [None]
  - MITRAL VALVE PROLAPSE [None]
  - PAIN IN EXTREMITY [None]
  - ONYCHOMYCOSIS [None]
  - BURSITIS [None]
  - CORONARY ARTERY DISEASE [None]
  - ANAEMIA [None]
  - LUMBAR SPINAL STENOSIS [None]
  - DYSPAREUNIA [None]
  - FALL [None]
  - INTERVERTEBRAL DISC DEGENERATION [None]
  - ALOPECIA [None]
  - ANAEMIA OF CHRONIC DISEASE [None]
  - CARDIAC FAILURE [None]
  - ABSCESS [None]
  - ARTERIOSCLEROSIS CORONARY ARTERY [None]
  - CALCIUM DEFICIENCY [None]
  - HYPERTENSION [None]
  - RHINITIS ALLERGIC [None]
  - ACROCHORDON [None]
  - ARTHRALGIA [None]
  - DEVICE MALFUNCTION [None]
  - BENIGN NEOPLASM [None]
  - NEOPLASM MALIGNANT [None]
  - GASTROINTESTINAL DISORDER [None]
  - DEEP VEIN THROMBOSIS [None]
  - WEIGHT DECREASED [None]
  - ROTATOR CUFF SYNDROME [None]
  - ARTHRITIS [None]
  - BRONCHITIS [None]
  - SUTURE RELATED COMPLICATION [None]
  - ABDOMINAL PAIN UPPER [None]
  - INFECTION [None]
  - VITAMIN D DEFICIENCY [None]
  - MUSCLE STRAIN [None]
  - TENOSYNOVITIS [None]
  - HYPERLIPIDAEMIA [None]
  - NAIL DISORDER [None]
  - FATIGUE [None]
  - VAGINAL HAEMORRHAGE [None]
  - INFLUENZA LIKE ILLNESS [None]
  - EXOSTOSIS [None]
  - INTERVERTEBRAL DISC PROTRUSION [None]
  - URINARY TRACT INFECTION [None]
  - HAEMATOMA [None]
